FAERS Safety Report 5507451-2 (Version None)
Quarter: 2007Q4

REPORT INFORMATION
  Report Type: 
  Country: None (occurrence: None)
  Receive Date: 20071106
  Receipt Date: 20071031
  Transmission Date: 20080405
  Serious: Yes (Death, Life-Threatening)
  Sender: FDA-Public Use
  Company Number: SE-BAYER-200716527GDS

PATIENT
  Age: 75 Year
  Sex: Male

DRUGS (3)
  1. TRASYLOL [Suspect]
     Indication: CORONARY ARTERY BYPASS
     Route: 042
  2. PREDNISOLONE [Concomitant]
     Indication: DRUG USE FOR UNKNOWN INDICATION
     Route: 065
  3. METHOTREXATE [Concomitant]
     Indication: DRUG USE FOR UNKNOWN INDICATION
     Route: 065

REACTIONS (3)
  - CARDIAC FAILURE ACUTE [None]
  - MEDICAL DEVICE COMPLICATION [None]
  - VASCULAR GRAFT OCCLUSION [None]
